FAERS Safety Report 7882007-5 (Version None)
Quarter: 2011Q4

REPORT INFORMATION
  Report Type: 
  Country: None (occurrence: None)
  Receive Date: 20111101
  Receipt Date: 20110607
  Transmission Date: 20120403
  Serious: No
  Sender: FDA-Public Use
  Company Number: US-AMGEN-USASP2011029147

PATIENT
  Sex: Male

DRUGS (4)
  1. HUMIRA [Concomitant]
     Indication: RHEUMATOID ARTHRITIS
     Dosage: UNK
  2. REMICADE [Concomitant]
  3. ENBREL [Suspect]
     Indication: RHEUMATOID ARTHRITIS
     Dosage: 50 MG, QWK
     Dates: start: 20040325
  4. REMICADE [Concomitant]
     Indication: RHEUMATOID ARTHRITIS
     Dosage: UNK

REACTIONS (1)
  - DRUG INEFFECTIVE [None]
